FAERS Safety Report 7212398-X (Version None)
Quarter: 2010Q4

REPORT INFORMATION
  Report Type: 
  Country: None (occurrence: None)
  Receive Date: 20101229
  Receipt Date: 20101229
  Transmission Date: 20110411
  Serious: Yes (Other)
  Sender: FDA-Public Use
  Company Number: OU-10-043-4

PATIENT
  Age: 80 Year
  Sex: Female

DRUGS (1)
  1. CEFTRIAXONE FOR INJECTION (NO PREF. NAME) [Suspect]
     Indication: CELLULITIS
     Dosage: 4 G PER DAY; IV
     Route: 042

REACTIONS (9)
  - AZOTAEMIA [None]
  - CHOLECYSTITIS [None]
  - CHOLELITHIASIS [None]
  - CHOREOATHETOSIS [None]
  - DISORIENTATION [None]
  - DYSSTASIA [None]
  - HAEMODIALYSIS [None]
  - OVERDOSE [None]
  - PYREXIA [None]
